FAERS Safety Report 9982223 (Version 1)
Quarter: 2014Q1

REPORT INFORMATION
  Report Type: Report from Study
  Country: US (occurrence: US)
  Receive Date: 20140307
  Receipt Date: 20140307
  Transmission Date: 20141002
  Serious: No
  Sender: FDA-Public Use
  Company Number: US-ABBVIE-13P-163-1179487-00

PATIENT
  Age: 70 Year
  Sex: Male

DRUGS (17)
  1. HUMIRA [Suspect]
     Indication: COLITIS ULCERATIVE
     Dates: start: 20130929
  2. TRAZODONE [Concomitant]
     Indication: INSOMNIA
     Route: 048
  3. GABAPENTIN [Concomitant]
     Indication: ARTHRITIS
     Route: 048
  4. ASACOL [Concomitant]
     Indication: COLITIS ULCERATIVE
     Route: 048
  5. SIMVASTATIN [Concomitant]
     Indication: BLOOD CHOLESTEROL INCREASED
     Route: 048
  6. RAMIPRIL [Concomitant]
     Indication: HYPERTENSION
     Route: 048
  7. ADVAIR [Concomitant]
     Indication: CHRONIC OBSTRUCTIVE PULMONARY DISEASE
     Dosage: 550 INHALER
  8. NEXIUM [Concomitant]
     Indication: GASTRIC DISORDER
     Route: 048
  9. AMBIEN [Concomitant]
     Indication: INSOMNIA
     Route: 048
  10. LORAZEPAM [Concomitant]
     Indication: INSOMNIA
     Route: 048
  11. FINASTERIDE [Concomitant]
     Indication: PROSTATIC DISORDER
     Route: 048
  12. CALCIUM [Concomitant]
     Indication: PRODUCT USED FOR UNKNOWN INDICATION
  13. FOLIC ACID [Concomitant]
     Indication: PRODUCT USED FOR UNKNOWN INDICATION
  14. B12 [Concomitant]
     Indication: PRODUCT USED FOR UNKNOWN INDICATION
  15. B COMPLEX [Concomitant]
     Indication: PRODUCT USED FOR UNKNOWN INDICATION
  16. MULTIVITAMIN [Concomitant]
     Indication: PRODUCT USED FOR UNKNOWN INDICATION
  17. XINASTERIDE [Concomitant]
     Indication: PROSTATIC DISORDER
     Route: 048

REACTIONS (1)
  - Rectal haemorrhage [Not Recovered/Not Resolved]
